FAERS Safety Report 7557221-9 (Version None)
Quarter: 2011Q2

REPORT INFORMATION
  Report Type: 
  Country: None (occurrence: None)
  Receive Date: 20110620
  Receipt Date: 20110113
  Transmission Date: 20111010
  Serious: No
  Sender: FDA-Public Use
  Company Number: US-MYLANLABS-2011S1000981

PATIENT
  Age: 78 Year
  Sex: Female
  Weight: 44.91 kg

DRUGS (5)
  1. PAIN MEDICATIONS [Concomitant]
     Dosage: STARTED MANY YEARS BEFORE MAR-2010
  2. FOSAMAX [Concomitant]
     Dosage: STARTED BEFORE MAR-2010
  3. TIOVA [Suspect]
     Indication: CHRONIC OBSTRUCTIVE PULMONARY DISEASE
     Route: 055
     Dates: start: 20100301
  4. MUSCLE RELAXANTS [Concomitant]
     Dosage: STARTED MANY YEARS BEFORE MAR-2010
  5. PERFOROMIST [Suspect]
     Indication: CHRONIC OBSTRUCTIVE PULMONARY DISEASE
     Route: 055
     Dates: start: 20100301

REACTIONS (1)
  - VISION BLURRED [None]
